FAERS Safety Report 9401044 (Version 1)
Quarter: 2013Q3

REPORT INFORMATION
  Report Type: Spontaneous
  Country: GB (occurrence: GB)
  Receive Date: 20130715
  Receipt Date: 20130715
  Transmission Date: 20140515
  Serious: Yes (Disabling, Other)
  Sender: FDA-Public Use
  Company Number: GB-WATSON-2013-12398

PATIENT
  Age: 33 Year
  Sex: Male

DRUGS (5)
  1. FLUOXETINE HYDROCHLORIDE (UNKNOWN) [Suspect]
     Indication: DEPRESSED MOOD
     Dosage: 20 MG, UNK
     Route: 048
     Dates: start: 20130316, end: 20130612
  2. ZOLMITRIPTAN (UNKNOWN) [Suspect]
     Indication: MIGRAINE
     Dosage: 2.5 MG/M2, UNKNOWN
     Route: 048
     Dates: start: 20130611, end: 20130611
  3. SERETIDE [Concomitant]
     Indication: PRODUCT USED FOR UNKNOWN INDICATION
     Dosage: UNK, UNKNOWN
     Route: 065
  4. MIGRALEVE                          /00116401/ [Concomitant]
     Indication: MIGRAINE
     Dosage: UNK UNK, UNKNOWN
     Route: 065
  5. ALOE VERA [Concomitant]
     Indication: PRODUCT USED FOR UNKNOWN INDICATION
     Dosage: UNK, UNKNOWN
     Route: 065

REACTIONS (9)
  - Chest discomfort [Unknown]
  - Serotonin syndrome [Unknown]
  - Drug interaction [Unknown]
  - Palpitations [Unknown]
  - Chills [Unknown]
  - Dyspnoea [Unknown]
  - Feeling abnormal [Unknown]
  - Tremor [Unknown]
  - Abasia [Unknown]
